FAERS Safety Report 9410248 (Version 2)
Quarter: 2013Q2

REPORT INFORMATION
  Report Type: Spontaneous
  Country: FR (occurrence: None)
  Receive Date: 20130515
  Receipt Date: 20130515
  Transmission Date: 20140414
  Serious: Yes (Other)
  Sender: FDA-Public Use
  Company Number: JPI-P-010048

PATIENT
  Age: 61 Year
  Sex: Male

DRUGS (5)
  1. XYREM (500 MILLIGRAM/MILLILITERS, SOLUTION) (SODIUM OXYBATE) [Suspect]
     Indication: CATAPLEXY
     Dosage: 4.5 GM (2.25 GM,2 IN 1 D)?
     Route: 048
     Dates: start: 20091022, end: 20091117
  2. ATORVASTATIN CALCIUM [Suspect]
     Indication: PRODUCT USED FOR UNKNOWN INDICATION
  3. MODAFINIL [Concomitant]
  4. PAROXETINE [Concomitant]
  5. LYSINE ACETYLSALICYLATE [Concomitant]

REACTIONS (5)
  - Abdominal pain [None]
  - Dyspnoea [None]
  - Abnormal dreams [None]
  - Musculoskeletal chest pain [None]
  - Gamma-glutamyltransferase increased [None]
